FAERS Safety Report 22088100 (Version 1)
Quarter: 2023Q1

REPORT INFORMATION
  Report Type: Spontaneous
  Country: US (occurrence: US)
  Receive Date: 20230313
  Receipt Date: 20230313
  Transmission Date: 20230417
  Serious: No
  Sender: FDA-Public Use
  Company Number: US-GSK-US2023AMR034489

PATIENT
  Age: 75 Year
  Sex: Female

DRUGS (2)
  1. ALBUTEROL SULFATE [Suspect]
     Active Substance: ALBUTEROL SULFATE
     Indication: Oxygen saturation abnormal
     Dosage: 6 PUFF(S), Z EVERY 6 HOURS, 90 MCG, 18G/200 METERED
  2. ALBUTEROL SULFATE [Suspect]
     Active Substance: ALBUTEROL SULFATE
     Indication: Wheezing
     Dosage: 1 PUFF(S), Z WAIT A LITTLE BIT AND TAKE ANOTHER

REACTIONS (7)
  - Tremor [Unknown]
  - Erythema [Unknown]
  - Dyspnoea [Unknown]
  - Product dose omission issue [Unknown]
  - Underdose [Unknown]
  - Product prescribing issue [Unknown]
  - Product use in unapproved indication [Unknown]

NARRATIVE: CASE EVENT DATE: 20230119
